FAERS Safety Report 9136673 (Version 1)
Quarter: 2013Q1

REPORT INFORMATION
  Report Type: Spontaneous
  Country: US (occurrence: US)
  Receive Date: 20130304
  Receipt Date: 20130304
  Transmission Date: 20140127
  Serious: No
  Sender: FDA-Public Use
  Company Number: US-ABBOTT-12P-163-0912411-00

PATIENT
  Age: 66 Year
  Sex: Male
  Weight: 81.72 kg

DRUGS (5)
  1. ANDROGEL 1% [Suspect]
     Indication: BLOOD TESTOSTERONE DECREASED
     Route: 061
  2. EFFEXOR [Concomitant]
     Indication: HIATUS HERNIA
  3. EFFEXOR [Concomitant]
     Indication: MUSCLE SPASMS
  4. ZOCOR [Concomitant]
     Indication: BLOOD CHOLESTEROL INCREASED
     Route: 048
  5. AMBIEN [Concomitant]
     Indication: SLEEP DISORDER THERAPY
     Dosage: AT HOUR OF SLEEP
     Route: 048

REACTIONS (2)
  - Poor quality sleep [Not Recovered/Not Resolved]
  - Increased appetite [Not Recovered/Not Resolved]
